FAERS Safety Report 24235096 (Version 1)
Quarter: 2024Q3

REPORT INFORMATION
  Report Type: Report from Study
  Country: US (occurrence: US)
  Receive Date: 20240821
  Receipt Date: 20240821
  Transmission Date: 20241016
  Serious: No
  Sender: INCYTE
  Company Number: US-INCYTE CORPORATION-2024IN006785

PATIENT

DRUGS (1)
  1. JAKAFI [Suspect]
     Active Substance: RUXOLITINIB
     Indication: Myelofibrosis
     Dosage: 20 MILLIGRAM, QD
     Route: 048
     Dates: start: 20240625

REACTIONS (7)
  - Pain [Unknown]
  - Crying [Unknown]
  - Nodule [Unknown]
  - Skin disorder [Unknown]
  - Fatigue [Unknown]
  - Agitation [Unknown]
  - Headache [Recovering/Resolving]

NARRATIVE: CASE EVENT DATE: 20240625
